FAERS Safety Report 5154685-5 (Version None)
Quarter: 2006Q4

REPORT INFORMATION
  Report Type: 
  Country: None (occurrence: None)
  Receive Date: 20061113
  Receipt Date: 20061103
  Transmission Date: 20070319
  Serious: Yes (Life-Threatening)
  Sender: FDA-Public Use
  Company Number: 200611AGG00508

PATIENT
  Age: 71 Year
  Sex: Female

DRUGS (10)
  1. AGGRASTAT [Suspect]
     Indication: ACUTE MYOCARDIAL INFARCTION
     Dosage: 12.5 MG DAILY IV
     Route: 042
     Dates: start: 20061022, end: 20061023
  2. HEPARIN [Suspect]
     Indication: ACUTE MYOCARDIAL INFARCTION
     Dosage: 25 00 IU DAILY INJ
     Dates: start: 20061021, end: 20061023
  3. PLAVIX [Suspect]
     Indication: ACUTE MYOCARDIAL INFARCTION
     Dosage: ONE DOSE OF 75MG ORALLY
     Route: 048
     Dates: start: 20061022, end: 20061023
  4. EFFEXOR [Concomitant]
  5. NOVALGINA [Concomitant]
  6. TAREG [Concomitant]
  7. ATENOLOL [Concomitant]
  8. ISOSORBIDE [Concomitant]
  9. MORPHINE [Concomitant]
  10. PANTOPRAZOLE SODIUM [Concomitant]

REACTIONS (2)
  - ANAEMIA [None]
  - HAEMATOMA [None]
